FAERS Safety Report 4617525-6 (Version None)
Quarter: 2005Q1

REPORT INFORMATION
  Report Type: 
  Country: None (occurrence: None)
  Receive Date: 20050314
  Receipt Date: 20050228
  Transmission Date: 20050727
  Serious: Yes (Hospitalization)
  Sender: FDA-Public Use
  Company Number: THYM-10427

PATIENT
  Age: 8 Year
  Sex: Female
  Weight: 20 kg

DRUGS (7)
  1. THYMOGLOBULIN [Suspect]
     Indication: BONE MARROW TRANSPLANT
     Dosage: 2.5 MG/KG ONCE IV
     Route: 042
     Dates: start: 20050208, end: 20050208
  2. THYMOGLOBULIN [Suspect]
     Indication: MYELODYSPLASTIC SYNDROME
     Dosage: 2.5 MG/KG ONCE IV
     Route: 042
     Dates: start: 20050208, end: 20050208
  3. THYMOGLOBULIN [Suspect]
  4. THYMOGLOBULIN [Suspect]
     Indication: BONE MARROW DEPRESSION
     Dosage: 50 MG QD IV
     Route: 042
     Dates: start: 20050209, end: 20050212
  5. THYMOGLOBULIN [Suspect]
     Indication: BONE MARROW TRANSPLANT
     Dosage: 50 MG QD IV
     Route: 042
     Dates: start: 20050209, end: 20050212
  6. CYCLOSPORINE [Concomitant]
  7. AMBISOME [Concomitant]

REACTIONS (8)
  - BLOOD GLUCOSE DECREASED [None]
  - CYTOKINE RELEASE SYNDROME [None]
  - HYPOTENSION [None]
  - LOSS OF CONSCIOUSNESS [None]
  - MALAISE [None]
  - SEDATION [None]
  - TACHYCARDIA [None]
  - TINNITUS [None]
